FAERS Safety Report 16016204 (Version 1)
Quarter: 2019Q1

REPORT INFORMATION
  Report Type: Spontaneous
  Country: JP (occurrence: JP)
  Receive Date: 20190228
  Receipt Date: 20190228
  Transmission Date: 20190418
  Serious: Yes (Disabling)
  Sender: FDA-Public Use
  Company Number: JP-UCBSA-2019007160

PATIENT
  Age: 28 Year
  Sex: Female

DRUGS (1)
  1. E KEPPRA [Suspect]
     Active Substance: LEVETIRACETAM
     Indication: PRODUCT USED FOR UNKNOWN INDICATION
     Dosage: UNK
     Route: 048
     Dates: start: 201306, end: 201307

REACTIONS (2)
  - Stevens-Johnson syndrome [Unknown]
  - Visual impairment [Unknown]

NARRATIVE: CASE EVENT DATE: 2013
